FAERS Safety Report 7807167-3 (Version None)
Quarter: 2011Q4

REPORT INFORMATION
  Report Type: 
  Country: None (occurrence: None)
  Receive Date: 20111011
  Receipt Date: 20111004
  Transmission Date: 20120403
  Serious: Yes (Other)
  Sender: FDA-Public Use
  Company Number: PHHY2011VE87820

PATIENT
  Sex: Female

DRUGS (5)
  1. GLUCOSAMINE [Concomitant]
     Indication: ARTHRITIS
     Dosage: 500 MG, UNK
     Route: 048
  2. NEURONTIN [Concomitant]
     Route: 048
  3. ZOLEDRONOC ACID [Suspect]
     Indication: OSTEOPOROSIS
     Dosage: 5 MG, ONCE A YEAR
     Route: 042
     Dates: start: 20100528
  4. CORASPIN [Concomitant]
     Indication: ANTIPLATELET THERAPY
     Dosage: 81 MG, UNK
     Route: 048
  5. CALCIBON D [Concomitant]
     Indication: MINERAL SUPPLEMENTATION
     Dosage: 1,500 MG CALCIUM CITRATE TETRAHYDRATE (EQUIVALENT TO 315MG OF ELEMENTAL CALCIUM), VIT D3 200UI

REACTIONS (6)
  - INTERVERTEBRAL DISC PROTRUSION [None]
  - GAIT DISTURBANCE [None]
  - BONE PAIN [None]
  - ARTHROPATHY [None]
  - FEELING ABNORMAL [None]
  - DISCOMFORT [None]
